FAERS Safety Report 13564889 (Version 1)
Quarter: 2017Q2

REPORT INFORMATION
  Report Type: Spontaneous
  Country: US (occurrence: US)
  Receive Date: 20170519
  Receipt Date: 20170519
  Transmission Date: 20170830
  Serious: No
  Sender: FDA-Public Use
  Company Number: US-009507513-1606USA003776

PATIENT

DRUGS (2)
  1. BRIDION [Suspect]
     Active Substance: SUGAMMADEX
     Dosage: STRENGTH: 200 MG/2ML
  2. BRIDION [Suspect]
     Active Substance: SUGAMMADEX
     Dosage: STRENGTH: 500MG/5ML

REACTIONS (3)
  - Circumstance or information capable of leading to medication error [Unknown]
  - Product label confusion [Unknown]
  - Intercepted medication error [Unknown]
